FAERS Safety Report 19681760 (Version 4)
Quarter: 2021Q3

REPORT INFORMATION
  Report Type: Report from Study
  Country: US (occurrence: US)
  Receive Date: 20210810
  Receipt Date: 20210917
  Transmission Date: 20211014
  Serious: Yes (Hospitalization)
  Sender: FDA-Public Use
  Company Number: US-JNJFOC-20210626238

PATIENT
  Age: 72 Year
  Sex: Female
  Weight: 80.9 kg

DRUGS (8)
  1. SILDENAFIL CITRATE. [Concomitant]
     Active Substance: SILDENAFIL CITRATE
     Dates: start: 20210818
  2. ELIQUIS [Concomitant]
     Active Substance: APIXABAN
  3. CELESTONE [Suspect]
     Active Substance: BETAMETHASONE
     Indication: PRODUCT USED FOR UNKNOWN INDICATION
     Route: 065
  4. MACITENTAN [Suspect]
     Active Substance: MACITENTAN
     Indication: PULMONARY ARTERIAL HYPERTENSION
     Route: 048
     Dates: start: 2019
  5. OZEMPIC [Suspect]
     Active Substance: SEMAGLUTIDE
     Indication: PRODUCT USED FOR UNKNOWN INDICATION
     Route: 065
  6. SILDENAFIL CITRATE. [Concomitant]
     Active Substance: SILDENAFIL CITRATE
     Dates: end: 20210812
  7. MACITENTAN [Suspect]
     Active Substance: MACITENTAN
     Route: 048
     Dates: end: 20210819
  8. MACITENTAN [Suspect]
     Active Substance: MACITENTAN
     Route: 048
     Dates: start: 20210826

REACTIONS (7)
  - Oedema peripheral [Recovered/Resolved]
  - Atrial fibrillation [Unknown]
  - Dermatitis allergic [Not Recovered/Not Resolved]
  - Dyspnoea exertional [Unknown]
  - Fall [Unknown]
  - Hepatic enzyme abnormal [Recovered/Resolved]
  - COVID-19 [Unknown]

NARRATIVE: CASE EVENT DATE: 20210610
